FAERS Safety Report 8966208 (Version 3)
Quarter: 2013Q4

REPORT INFORMATION
  Report Type: Report from Study
  Country: AT (occurrence: AT)
  Receive Date: 20121217
  Receipt Date: 20131008
  Transmission Date: 20140711
  Serious: Yes (Hospitalization, Other)
  Sender: FDA-Public Use
  Company Number: AT-PFIZER INC-2012312433

PATIENT
  Age: 84 Year
  Sex: Male
  Weight: 75 kg

DRUGS (5)
  1. XALKORI [Suspect]
     Indication: NON-SMALL CELL LUNG CANCER METASTATIC
     Dosage: 250 MG, 2X/DAY
     Dates: start: 20120614
  2. XALKORI [Suspect]
     Dosage: 250 MG, 1X/DAY
     Dates: start: 20121015, end: 20121106
  3. PANTOLOC [Concomitant]
     Dosage: 40 MG, 1X/DAY
  4. ZOMETA [Concomitant]
     Dosage: 4 MG, MONTHLY
  5. NOVALGIN [Concomitant]
     Dosage: 1 G, 1X/DAY
     Dates: start: 20120807

REACTIONS (6)
  - Constipation [Unknown]
  - Constipation [Unknown]
  - Decreased appetite [Unknown]
  - Weight decreased [Unknown]
  - Reflux gastritis [Unknown]
  - Gastrointestinal mucosal disorder [Unknown]
